FAERS Safety Report 11434984 (Version 1)
Quarter: 2015Q3

REPORT INFORMATION
  Report Type: Other
  Country: FR (occurrence: FR)
  Receive Date: 20150831
  Receipt Date: 20150831
  Transmission Date: 20151125
  Serious: Yes (Other)
  Sender: FDA-Public Use
  Company Number: FR-MYLANLABS-2015M1028355

PATIENT

DRUGS (5)
  1. LEVOTHYROX [Concomitant]
     Active Substance: LEVOTHYROXINE
     Indication: PRODUCT USED FOR UNKNOWN INDICATION
  2. ATORVASTATINE                      /01326101/ [Concomitant]
     Active Substance: ATORVASTATIN
     Indication: PRODUCT USED FOR UNKNOWN INDICATION
  3. SOTALOL. [Concomitant]
     Active Substance: SOTALOL
     Indication: PRODUCT USED FOR UNKNOWN INDICATION
  4. TADENAN [Concomitant]
     Active Substance: PYGEUM
     Indication: PRODUCT USED FOR UNKNOWN INDICATION
  5. ENALAPRIL HYDROCHLOROTHIAZIDE MYLAN 20 MG/12,5 MG, COMPRIM? S?CABLE [Suspect]
     Active Substance: ENALAPRIL\HYDROCHLOROTHIAZIDE
     Indication: HYPERTENSION
     Dosage: 1 DF, QD
     Route: 048
     Dates: end: 201507

REACTIONS (1)
  - Hot flush [Recovered/Resolved]

NARRATIVE: CASE EVENT DATE: 201507
